FAERS Safety Report 7260541-9 (Version None)
Quarter: 2011Q1

REPORT INFORMATION
  Report Type: 
  Country: None (occurrence: None)
  Receive Date: 20110130
  Receipt Date: 20101230
  Transmission Date: 20110831
  Serious: No
  Sender: FDA-Public Use
  Company Number: US-ABBOTT-11P-163-0694817-00

PATIENT
  Age: 70 Year
  Sex: Female

DRUGS (1)
  1. HUMIRA [Suspect]
     Indication: PSORIATIC ARTHROPATHY
     Dates: start: 20100601

REACTIONS (5)
  - PAIN IN EXTREMITY [None]
  - PNEUMONIA [None]
  - CHEST PAIN [None]
  - COUGH [None]
  - SPUTUM DISCOLOURED [None]
